FAERS Safety Report 24091202 (Version 1)
Quarter: 2024Q3

REPORT INFORMATION
  Report Type: Spontaneous
  Country: ES (occurrence: ES)
  Receive Date: 20240715
  Receipt Date: 20240715
  Transmission Date: 20241017
  Serious: Yes (Life-Threatening, Other)
  Sender: HIKMA
  Company Number: None

PATIENT
  Sex: Female

DRUGS (1)
  1. ROCURONIUM [Suspect]
     Active Substance: ROCURONIUM BROMIDE
     Indication: Product used for unknown indication
     Dosage: 5 MILLILITER, SINGLE
     Route: 042
     Dates: start: 20240509, end: 20240509

REACTIONS (2)
  - Product administration error [Unknown]
  - Apnoea [Unknown]

NARRATIVE: CASE EVENT DATE: 20240509
